FAERS Safety Report 15049002 (Version 1)
Quarter: 2018Q2

REPORT INFORMATION
  Report Type: Spontaneous
  Country: FI (occurrence: FI)
  Receive Date: 20180622
  Receipt Date: 20180622
  Transmission Date: 20180711
  Serious: Yes (Death)
  Sender: FDA-Public Use
  Company Number: FI-ROCHE-2143524

PATIENT
  Age: 90 Year
  Sex: Male

DRUGS (1)
  1. TAMIFLU [Suspect]
     Active Substance: OSELTAMIVIR PHOSPHATE
     Indication: INFLUENZA
     Route: 048
     Dates: start: 20180221, end: 20180225

REACTIONS (6)
  - Cardiac disorder [Fatal]
  - Drug administration error [Fatal]
  - Meningeal disorder [Fatal]
  - Influenza [Fatal]
  - Pneumonia [Fatal]
  - Accidental overdose [Fatal]

NARRATIVE: CASE EVENT DATE: 20180225
